FAERS Safety Report 19138522 (Version 5)
Quarter: 2021Q3

REPORT INFORMATION
  Report Type: Report from Study
  Country: None (occurrence: TW)
  Receive Date: 20210415
  Receipt Date: 20210907
  Transmission Date: 20211014
  Serious: Yes (Hospitalization, Other)
  Sender: FDA-Public Use
  Company Number: TW-ABBVIE-21K-153-3852170-00

PATIENT
  Age: 51 Year
  Sex: Male
  Weight: 56 kg

DRUGS (2)
  1. IMURAN [Concomitant]
     Active Substance: AZATHIOPRINE
     Indication: CROHN^S DISEASE
     Route: 048
     Dates: start: 20140428
  2. HUMIRA [Suspect]
     Active Substance: ADALIMUMAB
     Indication: CROHN^S DISEASE
     Route: 058
     Dates: start: 20200910

REACTIONS (10)
  - Colostomy [Unknown]
  - Anastomotic stenosis [Recovered/Resolved]
  - Anastomotic stenosis [Recovered/Resolved]
  - Anastomotic stenosis [Recovered/Resolved]
  - Intestinal stenosis [Unknown]
  - Anastomotic stenosis [Recovered/Resolved]
  - Colostomy closure [Recovering/Resolving]
  - Anastomotic stenosis [Recovered/Resolved]
  - Gastrointestinal inflammation [Unknown]
  - Gastrointestinal anastomotic stenosis [Unknown]

NARRATIVE: CASE EVENT DATE: 2021
